FAERS Safety Report 4736393-5 (Version None)
Quarter: 2005Q3

REPORT INFORMATION
  Report Type: 
  Country: None (occurrence: None)
  Receive Date: 20050802
  Receipt Date: 20050722
  Transmission Date: 20060218
  Serious: Yes (Hospitalization, Disabling)
  Sender: FDA-Public Use
  Company Number: CO-2005-014572

PATIENT
  Age: 30 Year
  Sex: Female
  Weight: 80 kg

DRUGS (1)
  1. MIRENA [Suspect]
     Indication: CONTRACEPTION
     Dosage: 20 UG/DAU, INTRA-UTERINE
     Route: 015
     Dates: start: 20030512, end: 20050224

REACTIONS (3)
  - OVARIAN CYST [None]
  - OVARIAN EPITHELIAL CANCER [None]
  - PELVIC PERITONEAL ADHESIONS [None]
